FAERS Safety Report 14540605 (Version 1)
Quarter: 2018Q1

REPORT INFORMATION
  Report Type: Spontaneous
  Country: GB (occurrence: GB)
  Receive Date: 20180216
  Receipt Date: 20180216
  Transmission Date: 20180509
  Serious: Yes (Disabling)
  Sender: FDA-Public Use
  Company Number: GB-OTSUKA-DJ20070150

PATIENT

DRUGS (5)
  1. ABILIFY [Suspect]
     Active Substance: ARIPIPRAZOLE
     Indication: PSYCHOTIC DISORDER
     Route: 048
     Dates: start: 20040914
  2. PROCYCLIDINE [Concomitant]
     Active Substance: PROCYCLIDINE
     Route: 065
     Dates: start: 20040101
  3. SIMVASTATIN. [Concomitant]
     Active Substance: SIMVASTATIN
     Route: 065
  4. CO-TENIDONE [Concomitant]
     Active Substance: ATENOLOL\CHLORTHALIDONE
     Indication: HYPERTENSION
     Route: 065
  5. PERINDOPRIL [Concomitant]
     Active Substance: PERINDOPRIL
     Indication: HYPERTENSION
     Route: 065

REACTIONS (3)
  - Bruxism [Unknown]
  - Muscle rigidity [Unknown]
  - Extrapyramidal disorder [Unknown]
